FAERS Safety Report 7001831-4 (Version None)
Quarter: 2010Q3

REPORT INFORMATION
  Report Type: 
  Country: None (occurrence: None)
  Receive Date: 20100920
  Receipt Date: 20100402
  Transmission Date: 20110219
  Serious: No
  Sender: FDA-Public Use
  Company Number: US-ASTRAZENECA-2010SE14696

PATIENT
  Age: 52 Year
  Sex: Male

DRUGS (3)
  1. SEROQUEL [Suspect]
     Indication: BIPOLAR DISORDER
     Route: 048
     Dates: start: 20091101, end: 20100201
  2. SEROQUEL [Suspect]
     Indication: BIPOLAR I DISORDER
     Route: 048
     Dates: start: 20091101, end: 20100201
  3. DEPAKOTE [Concomitant]
     Dosage: 2000 MG DAILY

REACTIONS (2)
  - DYSKINESIA [None]
  - PAIN IN EXTREMITY [None]
